FAERS Safety Report 4434829-0 (Version None)
Quarter: 2004Q3

REPORT INFORMATION
  Report Type: 
  Country: None (occurrence: None)
  Receive Date: 20040726
  Receipt Date: 20040518
  Transmission Date: 20050211
  Serious: No
  Sender: FDA-Public Use
  Company Number: USA040259897

PATIENT
  Age: 69 Year
  Sex: Female
  Weight: 55 kg

DRUGS (8)
  1. FORTEO [Suspect]
     Indication: OSTEOPOROSIS
     Dosage: 20 UG DAY
     Dates: start: 20040209
  2. FLEXERIL [Concomitant]
  3. SINGULAIR [Concomitant]
  4. K-DUR 10 [Concomitant]
  5. COZAAR [Concomitant]
  6. VERAPAMIL [Concomitant]
  7. ESTRACE [Concomitant]
  8. PREVACID [Concomitant]

REACTIONS (6)
  - INJECTION SITE HAEMORRHAGE [None]
  - OEDEMA PERIPHERAL [None]
  - RASH PAPULAR [None]
  - VISION BLURRED [None]
  - VISUAL ACUITY REDUCED [None]
  - WEIGHT INCREASED [None]
